FAERS Safety Report 7288556-5 (Version None)
Quarter: 2011Q1

REPORT INFORMATION
  Report Type: 
  Country: None (occurrence: None)
  Receive Date: 20110207
  Receipt Date: 20110207
  Transmission Date: 20110831
  Serious: Yes (Life-Threatening)
  Sender: FDA-Public Use
  Company Number: None

PATIENT
  Sex: Male

DRUGS (1)
  1. LIDOCAINE [Suspect]
     Dates: start: 20100113, end: 20100113

REACTIONS (2)
  - PULSELESS ELECTRICAL ACTIVITY [None]
  - BLOOD PRESSURE DECREASED [None]
